FAERS Safety Report 8856423 (Version 1)
Quarter: 2012Q4

REPORT INFORMATION
  Report Type: 
  Country: US (occurrence: US)
  Receive Date: 20121023
  Receipt Date: 20121023
  Transmission Date: 20130627
  Serious: No
  Sender: FDA-Public Use
  Company Number: US-AMGEN-USASP2012057206

PATIENT
  Age: 54 Year
  Sex: Female
  Weight: 84.35 kg

DRUGS (5)
  1. ENBREL [Suspect]
     Indication: ANKYLOSING SPONDYLITIS
     Dosage: 50 mg, qwk
     Route: 058
     Dates: start: 20120828
  2. BRIMONIDINE [Concomitant]
     Dosage: UNK
  3. CELEBREX [Concomitant]
     Dosage: UNK
  4. LOSARTAN [Concomitant]
     Dosage: UNK
  5. HEARTBURN MD [Concomitant]
     Dosage: UNK

REACTIONS (1)
  - Headache [Unknown]
